FAERS Safety Report 8095603-X (Version None)
Quarter: 2012Q1

REPORT INFORMATION
  Report Type: 
  Country: None (occurrence: None)
  Receive Date: 20120129
  Receipt Date: 20111227
  Transmission Date: 20120608
  Serious: No
  Sender: FDA-Public Use
  Company Number: US-ABBOTT-11P-163-0887167-00

PATIENT
  Age: 57 Year
  Sex: Male

DRUGS (3)
  1. HUMIRA [Suspect]
     Indication: CROHN'S DISEASE
     Dates: start: 20111014
  2. COUMADIN [Concomitant]
     Indication: THROMBOSIS
     Dosage: 1MG EVERY OTHER DAY, 1.5 MG ON ALTERNATE DAYS
  3. VITAMIN B-12 [Concomitant]
     Indication: PRODUCT USED FOR UNKNOWN INDICATION
     Route: 050

REACTIONS (1)
  - NIGHT SWEATS [None]
